FAERS Safety Report 6159859-2 (Version None)
Quarter: 2009Q2

REPORT INFORMATION
  Report Type: 
  Country: None (occurrence: None)
  Receive Date: 20090415
  Receipt Date: 20090401
  Transmission Date: 20091009
  Serious: Yes (Other)
  Sender: FDA-Public Use
  Company Number: 8044619

PATIENT

DRUGS (2)
  1. KEPPRA [Suspect]
     Dosage: 250 MG 2/D
  2. KEPPRA [Suspect]
     Dosage: 500 MG 2/D

REACTIONS (1)
  - WHITE BLOOD CELL COUNT DECREASED [None]
